FAERS Safety Report 7112626-5 (Version None)
Quarter: 2010Q4

REPORT INFORMATION
  Report Type: 
  Country: None (occurrence: None)
  Receive Date: 20101119
  Receipt Date: 20101104
  Transmission Date: 20110411
  Serious: Yes (Hospitalization)
  Sender: FDA-Public Use
  Company Number: FR-SOLVAY-00210006488

PATIENT
  Age: 21470 Day
  Sex: Female

DRUGS (12)
  1. TARDYFERON [Concomitant]
     Indication: PRODUCT USED FOR UNKNOWN INDICATION
     Dosage: DAILY DOSE:  UNKNOWN
     Route: 065
  2. LEVOTHYROXINE SODIUM [Concomitant]
     Indication: PRODUCT USED FOR UNKNOWN INDICATION
     Dosage: DAILY DOSE:  UNKNOWN
     Route: 065
  3. ARANESP [Concomitant]
     Indication: PRODUCT USED FOR UNKNOWN INDICATION
     Dosage: DAILY DOSE:  UNKNOWN
     Route: 065
  4. AMLOR [Concomitant]
     Indication: PRODUCT USED FOR UNKNOWN INDICATION
     Dosage: DAILY DOSE:  UNKNOWN
     Route: 065
  5. ACIDE FOLIQUE [Concomitant]
     Indication: PRODUCT USED FOR UNKNOWN INDICATION
     Dosage: DAILY DOSE:  UNKNOWN
     Route: 065
  6. RENAGEL [Concomitant]
     Indication: PRODUCT USED FOR UNKNOWN INDICATION
     Dosage: DAILY DOSE:  UNKNOWN
     Route: 065
  7. VITAMIN B1 AND B6 [Concomitant]
     Indication: PRODUCT USED FOR UNKNOWN INDICATION
     Dosage: DAILY DOSE:  UNKNOWN
     Route: 065
  8. LASILIX [Suspect]
     Indication: PRODUCT USED FOR UNKNOWN INDICATION
     Dosage: DAILY DOSE: 240 MILLIGRAM(S), SIX TABLETS DAILY
     Route: 048
     Dates: start: 20100617, end: 20100620
  9. LASILIX [Suspect]
     Dosage: DAILY DOSE: 160 MILLIGRAM(S), FOUR TABLETS DAILY
     Route: 048
     Dates: start: 20100621, end: 20100622
  10. LASILIX [Suspect]
     Dosage: DAILY DOSE: 240 MILLIGRAM(S), SIX TABLETS DAILY
     Route: 048
     Dates: start: 20100623
  11. PERINDOPRIL BIOGARAN 2 MG [Suspect]
     Indication: PRODUCT USED FOR UNKNOWN INDICATION
     Dosage: DAILY DOSE: 2 MILLIGRAM(S)
     Route: 048
  12. CARDENSIEL [Suspect]
     Indication: PRODUCT USED FOR UNKNOWN INDICATION
     Dosage: DAILY DOSE: 3.75 MILLIGRAM(S)
     Route: 048

REACTIONS (5)
  - ACUTE PULMONARY OEDEMA [None]
  - DRUG INTERACTION [None]
  - HYPOGLYCAEMIA [None]
  - HYPONATRAEMIA [None]
  - SYNCOPE [None]
